FAERS Safety Report 20953625 (Version 2)
Quarter: 2022Q2

REPORT INFORMATION
  Report Type: Report from Study
  Country: CA (occurrence: CA)
  Receive Date: 20220613
  Receipt Date: 20220628
  Transmission Date: 20220720
  Serious: Yes (Other)
  Sender: FDA-Public Use
  Company Number: CA-ABBVIE-22K-028-4427561-00

PATIENT
  Sex: Male

DRUGS (1)
  1. HUMIRA [Suspect]
     Active Substance: ADALIMUMAB
     Indication: Rheumatoid arthritis
     Route: 058
     Dates: start: 20130804

REACTIONS (9)
  - Spinal cord compression [Unknown]
  - Tendon pain [Not Recovered/Not Resolved]
  - Mobility decreased [Unknown]
  - Musculoskeletal disorder [Unknown]
  - Spinal stenosis [Unknown]
  - Spondylitis [Unknown]
  - Gait disturbance [Unknown]
  - Intervertebral disc protrusion [Unknown]
  - Night sweats [Unknown]

NARRATIVE: CASE EVENT DATE: 20220101
